FAERS Safety Report 16857713 (Version 1)
Quarter: 2019Q3

REPORT INFORMATION
  Report Type: Spontaneous
  Country: US (occurrence: US)
  Receive Date: 20190926
  Receipt Date: 20190926
  Transmission Date: 20191005
  Serious: Yes (Other)
  Sender: FDA-Public Use
  Company Number: US-PFIZER INC-2019413171

PATIENT
  Sex: Male

DRUGS (3)
  1. SULFASALAZINE. [Suspect]
     Active Substance: SULFASALAZINE
     Dosage: UNK
     Dates: end: 2006
  2. INDOCIN [Suspect]
     Active Substance: INDOMETHACIN
     Dosage: UNK
     Dates: end: 2006
  3. NAPROXEN. [Suspect]
     Active Substance: NAPROXEN
     Dosage: UNK
     Dates: end: 2006

REACTIONS (1)
  - Renal impairment [Unknown]
